FAERS Safety Report 13637265 (Version 3)
Quarter: 2017Q2

REPORT INFORMATION
  Report Type: Spontaneous
  Country: US (occurrence: US)
  Receive Date: 20170609
  Receipt Date: 20170626
  Transmission Date: 20170830
  Serious: Yes (Hospitalization, Other)
  Sender: FDA-Public Use
  Company Number: US-PFIZER INC-2017246513

PATIENT
  Age: 62 Year
  Sex: Female
  Weight: 106 kg

DRUGS (16)
  1. IBRANCE [Suspect]
     Active Substance: PALBOCICLIB
     Indication: BREAST CANCER METASTATIC
     Dosage: 125 MG, 1X/DAY (1 T PO QD)
     Route: 048
     Dates: start: 201702
  2. CELEXA [Concomitant]
     Active Substance: CITALOPRAM HYDROBROMIDE
     Dosage: 10 MG, DAILY (TAKE 1 PO DAILY)
     Route: 048
  3. METFORMIN HCL [Concomitant]
     Active Substance: METFORMIN HYDROCHLORIDE
     Dosage: 500 MG, DAILY
     Route: 048
  4. ONDANSETRON HCL [Concomitant]
     Active Substance: ONDANSETRON HYDROCHLORIDE
     Indication: NAUSEA
     Dosage: 8 MG, AS NEEDED (EVERY 8 HOURS AS NEEDED)
     Route: 048
  5. COLACE [Concomitant]
     Active Substance: DOCUSATE SODIUM
     Dosage: 100 MG, AS NEEDED (TAKE 1 PO BID PRN)
     Route: 048
  6. LOSARTAN POTASSIUM. [Concomitant]
     Active Substance: LOSARTAN POTASSIUM
     Dosage: 50 MG, DAILY
     Route: 048
  7. FULVESTRANT [Suspect]
     Active Substance: FULVESTRANT
     Dosage: UNK
     Dates: start: 201702
  8. NAPROXEN. [Concomitant]
     Active Substance: NAPROXEN
     Dosage: 500 MG, 2X/DAY (TAKE 1 TABLET(S), ENTERIC COATED PO BID)
     Route: 048
  9. IBRANCE [Suspect]
     Active Substance: PALBOCICLIB
     Dosage: 125 MG, CYCLIC (TAKE 1 CAPSULE DAILY FOR 21 DAYS ON 7 DAYS OFF)
     Route: 048
  10. GABAPENTIN. [Concomitant]
     Active Substance: GABAPENTIN
     Dosage: 300 MG, 3X/DAY
     Route: 048
  11. LASIX [Concomitant]
     Active Substance: FUROSEMIDE
     Dosage: 40 MG, UNK (1 PO AS DIRECTED)
     Route: 048
  12. CYMBALTA [Concomitant]
     Active Substance: DULOXETINE HYDROCHLORIDE
     Indication: DEPRESSION
     Dosage: UNK
  13. DULOXETINE HCL [Concomitant]
     Active Substance: DULOXETINE HYDROCHLORIDE
     Dosage: 20 MG, 2X/DAY
     Route: 048
  14. HYDROCHLOROTHIAZIDE. [Concomitant]
     Active Substance: HYDROCHLOROTHIAZIDE
     Dosage: 12.5 MG, UNK (1 PO AS DIRECTED)
     Route: 048
  15. LEVOTHYROXINE SODIUM. [Concomitant]
     Active Substance: LEVOTHYROXINE SODIUM
     Dosage: 25 UG, DAILY
     Route: 048
  16. TRAMADOL. [Concomitant]
     Active Substance: TRAMADOL
     Indication: FIBROMYALGIA
     Dosage: UNK

REACTIONS (8)
  - Mucosal inflammation [Recovered/Resolved]
  - Neuropathy peripheral [Unknown]
  - Pleural effusion [Recovering/Resolving]
  - Dyspnoea [Recovering/Resolving]
  - Condition aggravated [Recovering/Resolving]
  - Fatigue [Unknown]
  - Loss of personal independence in daily activities [Unknown]
  - Fungal infection [Unknown]
